FAERS Safety Report 9907026 (Version 1)
Quarter: 2014Q1

REPORT INFORMATION
  Report Type: Spontaneous
  Country: JP (occurrence: JP)
  Receive Date: 20140218
  Receipt Date: 20140218
  Transmission Date: 20141002
  Serious: Yes (Other)
  Sender: FDA-Public Use
  Company Number: JP-WATSON-2014-02609

PATIENT
  Age: 28 Year
  Sex: Male

DRUGS (3)
  1. ETOPOSIDE (UNKNOWN) [Suspect]
     Indication: SEMINOMA
     Dosage: UNK
     Route: 065
     Dates: start: 200906
  2. CISPLATIN (UNKNOWN) [Suspect]
     Indication: SEMINOMA
     Dosage: UNK
     Route: 065
     Dates: start: 200906
  3. BLEOMYCIN [Suspect]
     Indication: SEMINOMA
     Dosage: TOTAL DOSE OF 270 MG
     Route: 065
     Dates: start: 200906

REACTIONS (3)
  - Bone marrow failure [Unknown]
  - Febrile neutropenia [Unknown]
  - Nausea [Unknown]
